FAERS Safety Report 7157946-3 (Version None)
Quarter: 2010Q4

REPORT INFORMATION
  Report Type: 
  Country: None (occurrence: None)
  Receive Date: 20101201
  Receipt Date: 20101115
  Transmission Date: 20110411
  Serious: Yes (Other)
  Sender: FDA-Public Use
  Company Number: 011900

PATIENT
  Sex: Male

DRUGS (2)
  1. BUSULFEX [Suspect]
     Indication: CHEMOTHERAPY
     Dosage: INTRAVENOUS
     Route: 042
  2. MELPHALAN HYDROCHLORIDE [Concomitant]

REACTIONS (1)
  - LUNG DISORDER [None]
